FAERS Safety Report 21680613 (Version 1)
Quarter: 2022Q4

REPORT INFORMATION
  Report Type: Report from Study
  Country: US (occurrence: US)
  Receive Date: 20221205
  Receipt Date: 20221205
  Transmission Date: 20230113
  Serious: No
  Sender: FDA-Public Use
  Company Number: US-ABBVIE-4212566

PATIENT
  Age: 52 Year
  Sex: Female

DRUGS (1)
  1. SKYRIZI [Suspect]
     Active Substance: RISANKIZUMAB-RZAA
     Indication: Product used for unknown indication
     Route: 058
     Dates: start: 20221117

REACTIONS (5)
  - Upper respiratory tract infection [Not Recovered/Not Resolved]
  - Anosmia [Unknown]
  - Hypertension [Not Recovered/Not Resolved]
  - Ear discomfort [Unknown]
  - Ageusia [Unknown]

NARRATIVE: CASE EVENT DATE: 20221117
